FAERS Safety Report 12115994 (Version 1)
Quarter: 2016Q1

REPORT INFORMATION
  Report Type: Spontaneous
  Country: US (occurrence: US)
  Receive Date: 20160225
  Receipt Date: 20160225
  Transmission Date: 20160526
  Serious: Yes (Other)
  Sender: FDA-Public Use
  Company Number: US-TEVA-636609USA

PATIENT
  Age: 60 Year
  Sex: Female

DRUGS (1)
  1. PROGESTERONE. [Suspect]
     Active Substance: PROGESTERONE
     Route: 065

REACTIONS (4)
  - Uterine leiomyoma [Unknown]
  - Uterine spasm [Unknown]
  - Vaginal haemorrhage [Unknown]
  - Endometrial thickening [Unknown]
